FAERS Safety Report 7599268-2 (Version None)
Quarter: 2011Q3

REPORT INFORMATION
  Report Type: 
  Country: None (occurrence: None)
  Receive Date: 20110711
  Receipt Date: 20110624
  Transmission Date: 20111222
  Serious: Yes (Hospitalization)
  Sender: FDA-Public Use
  Company Number: IT-BAYER-2011-055304

PATIENT
  Age: 87 Year
  Sex: Female

DRUGS (7)
  1. LASIX [Concomitant]
     Dosage: DAILY DOSE 50 MG
     Route: 048
  2. ASPIRIN [Suspect]
     Indication: PROPHYLAXIS
     Dosage: 100 MG, QD
     Route: 048
     Dates: start: 20090101, end: 20110528
  3. POTASSIUM CHLORIDE [Concomitant]
     Dosage: DAILY DOSE 600 MG
     Route: 048
  4. ALLOPURINOL [Concomitant]
     Dosage: DAILY DOSE 300 MG
     Route: 048
  5. CARVEDILOL [Concomitant]
     Dosage: DAILY DOSE 6.25 MG
     Route: 048
  6. NEXIUM [Concomitant]
     Dosage: DAILY DOSE 40 MG
     Route: 048
  7. ALDACTONE [Concomitant]
     Dosage: DAILY DOSE 25 MG
     Route: 048

REACTIONS (4)
  - ANAEMIA [None]
  - GASTROINTESTINAL HAEMORRHAGE [None]
  - MELAENA [None]
  - MYOCARDIAL ISCHAEMIA [None]
